FAERS Safety Report 8414338-4 (Version None)
Quarter: 2012Q2

REPORT INFORMATION
  Report Type: 
  Country: None (occurrence: None)
  Receive Date: 20120605
  Receipt Date: 20120531
  Transmission Date: 20120825
  Serious: Yes (Death, Other)
  Sender: FDA-Public Use
  Company Number: US-JNJFOC-20120600500

PATIENT
  Age: 7 Decade
  Sex: Male

DRUGS (1)
  1. REOPRO [Suspect]
     Indication: ACUTE MYOCARDIAL INFARCTION
     Dosage: 10 MG/5ML, 5 MLX1 VIALS AM
     Route: 042
     Dates: start: 20120526

REACTIONS (2)
  - RENAL FAILURE [None]
  - DEATH [None]
